FAERS Safety Report 7554944-2 (Version None)
Quarter: 2011Q2

REPORT INFORMATION
  Report Type: 
  Country: None (occurrence: None)
  Receive Date: 20110617
  Receipt Date: 20110610
  Transmission Date: 20111010
  Serious: Yes (Death, Hospitalization)
  Sender: FDA-Public Use
  Company Number: US-TEVA-285751USA

PATIENT
  Sex: Male
  Weight: 81 kg

DRUGS (21)
  1. CARBOPLATIN [Suspect]
     Indication: HEAD AND NECK CANCER
     Route: 042
     Dates: start: 20110517, end: 20110517
  2. BENZYL ALCOHOL [Concomitant]
     Indication: MEDICAL DIET
     Dosage: 2 TBLSPN. DAILY VIA PEG TUBE
     Route: 048
     Dates: start: 20110516
  3. OMEPRAZOLE [Concomitant]
     Indication: GASTROOESOPHAGEAL REFLUX DISEASE
     Dosage: TAKE 10 MIN. PRIOR TO MEAL
     Route: 048
     Dates: start: 20110516
  4. CEPHALEXIN [Concomitant]
     Indication: INFECTION
     Dosage: 2 TSPN 2X/DAY FOR 7 DAYS
     Route: 048
     Dates: start: 20110516
  5. ZOLPIDEM [Concomitant]
     Indication: INSOMNIA
     Dosage: 1 IN 1 HS
     Route: 048
     Dates: start: 20110516
  6. FLUOROURACIL [Suspect]
     Indication: HEAD AND NECK CANCER
     Route: 042
     Dates: start: 20110517, end: 20110521
  7. MAGNESIUM HYDROXIDE [Concomitant]
     Indication: CONSTIPATION
     Dosage: 2 TSPNS., VIA PEG, AS NEEDED
     Route: 048
     Dates: start: 20110516
  8. PROCHLORPERAZINE MALEATE [Concomitant]
     Indication: NAUSEA
     Dosage: 1 TAB, 2X/DAY, AS NEEDED
     Route: 048
     Dates: start: 20110516
  9. PROCHLORPERAZINE MALEATE [Concomitant]
     Indication: VOMITING
  10. POTASSIUM CHLORIDE [Concomitant]
     Indication: BLOOD POTASSIUM DECREASED
     Dosage: 1 TBLSPN. DAILY FOR 14 DAYS
     Route: 048
     Dates: start: 20110502
  11. DEXAMETHASONE [Concomitant]
     Indication: NAUSEA
     Dosage: 2 TABS, 2X/DAY FOR 3 DAYS AND AS DIRECTED
     Route: 048
     Dates: start: 20110516
  12. FENTANYL-100 [Concomitant]
     Dosage: 1 IN 72 HR.
     Route: 062
     Dates: start: 20110516
  13. ACETAMINOPHEN [Concomitant]
     Indication: PAIN
     Dosage: 10 MG/325 MG, TAKE 2 TABS AT 6 HOURS
     Route: 048
     Dates: start: 20110516
  14. ENSURE [Concomitant]
     Indication: MEDICAL DIET
     Dosage: 5 CANS/DAY VIA PEG
     Route: 048
     Dates: start: 20110516
  15. INVESTIGATIONAL DRUG [Suspect]
     Indication: HEAD AND NECK CANCER
     Route: 042
     Dates: start: 20110517, end: 20110531
  16. METOCLOPRAMIDE HYDROCHLORIDE [Concomitant]
     Indication: HICCUPS
     Dosage: 1 TAB AT 6 HRS AS NEEDED
     Route: 048
     Dates: start: 20110516
  17. ONDANSETRON HYDROCHLORIDE [Concomitant]
     Indication: NAUSEA
     Dosage: 1 TABLET AT 6 HOURS
     Route: 048
  18. ONDANSETRON HYDROCHLORIDE [Concomitant]
     Indication: VOMITING
  19. SENNOSIDE A+B CALCIUM [Concomitant]
     Indication: CONSTIPATION
     Dosage: 2 TSPN., 2X/DAY, VIA PEG TUBE, AS NEEDED
     Route: 048
     Dates: start: 20110516
  20. FENTANYL-100 [Concomitant]
     Dosage: 1 IN 72 HR.
     Route: 062
     Dates: start: 20110516
  21. OMEPRAZOLE [Concomitant]
     Indication: GASTRIC ULCER

REACTIONS (1)
  - SEPTIC SHOCK [None]
